FAERS Safety Report 6241122-2 (Version None)
Quarter: 2009Q2

REPORT INFORMATION
  Report Type: 
  Country: None (occurrence: None)
  Receive Date: 20090623
  Receipt Date: 20090612
  Transmission Date: 20091009
  Serious: Yes (Hospitalization)
  Sender: FDA-Public Use
  Company Number: FR-ELI_LILLY_AND_COMPANY-FR200906003180

PATIENT
  Sex: Female
  Weight: 84 kg

DRUGS (7)
  1. EXENATIDE [Suspect]
     Indication: DIABETES MELLITUS
     Dosage: 2X10 UG, DAILY (1/D)
     Route: 058
     Dates: end: 20090608
  2. AMARYL [Concomitant]
     Dosage: 6 MG, UNKNOWN
     Dates: start: 20090515
  3. STAGID [Concomitant]
     Dates: start: 20081101
  4. STAGID [Concomitant]
     Dosage: 700U X 4
     Dates: start: 20090515
  5. PRETERAX [Concomitant]
     Dates: start: 20081117
  6. KARDEGIC /00002703/ [Concomitant]
     Dosage: 75 U, UNKNOWN
     Dates: start: 20081101
  7. ATARAX [Concomitant]
     Dosage: 0.5 D/F, UNKNOWN
     Dates: start: 20090201

REACTIONS (2)
  - DIABETES MELLITUS [None]
  - NAUSEA [None]
